FAERS Safety Report 14110272 (Version 4)
Quarter: 2019Q2

REPORT INFORMATION
  Report Type: Spontaneous
  Country: FR (occurrence: FR)
  Receive Date: 20171020
  Receipt Date: 20190425
  Transmission Date: 20190711
  Serious: Yes (Other)
  Sender: FDA-Public Use
  Company Number: FR-MERCK KGAA-2030838

PATIENT
  Age: 51 Year
  Sex: Female
  Weight: 56 kg

DRUGS (5)
  1. EUTHYROX [Suspect]
     Active Substance: LEVOTHYROXINE SODIUM
     Route: 048
     Dates: start: 20170910, end: 201803
  2. ESOMEPRAZOLE SANDOZ [Concomitant]
     Active Substance: ESOMEPRAZOLE
     Route: 048
     Dates: start: 201707, end: 201709
  3. EUTHYROX [Suspect]
     Active Substance: LEVOTHYROXINE SODIUM
     Indication: HYPOTHYROIDISM
     Route: 048
     Dates: start: 20170525, end: 20170910
  4. DOMPERIDONE BIOGARAN [Concomitant]
     Active Substance: DOMPERIDONE
     Route: 048
     Dates: start: 20180127
  5. LEVOTHYROXINE SODIQUE [Concomitant]
     Active Substance: LEVOTHYROXINE SODIUM
     Route: 048
     Dates: start: 201804

REACTIONS (12)
  - Gastritis [Recovered/Resolved]
  - Insomnia [Recovered/Resolved]
  - Blood thyroid stimulating hormone decreased [Unknown]
  - Abdominal pain upper [Recovered/Resolved]
  - Blood thyroid stimulating hormone increased [Unknown]
  - Blood thyroid stimulating hormone normal [Recovered/Resolved]
  - Chest discomfort [Recovered/Resolved]
  - Gastrointestinal disorder [Recovered/Resolved]
  - Oesophagitis [Recovered/Resolved]
  - Oesophageal spasm [Recovered/Resolved]
  - Dyspnoea [Recovered/Resolved]
  - Dysphagia [Recovered/Resolved]

NARRATIVE: CASE EVENT DATE: 20170626
